FAERS Safety Report 11058098 (Version 1)
Quarter: 2015Q2

REPORT INFORMATION
  Report Type: Spontaneous
  Country: US (occurrence: None)
  Receive Date: 20150422
  Receipt Date: 20150422
  Transmission Date: 20150821
  Serious: No
  Sender: FDA-Public Use
  Company Number: None

PATIENT
  Age: 56 Year
  Sex: Female

DRUGS (1)
  1. TECFIDERA [Suspect]
     Active Substance: DIMETHYL FUMARATE
     Indication: MULTIPLE SCLEROSIS
     Dosage: 240MG CAPS, BID, PO
     Route: 048
     Dates: start: 20141114, end: 20150325

REACTIONS (4)
  - Dyspnoea [None]
  - Flushing [None]
  - Abdominal discomfort [None]
  - Pruritus [None]
